FAERS Safety Report 4364464-4 (Version None)
Quarter: 2004Q2

REPORT INFORMATION
  Report Type: 
  Country: None (occurrence: None)
  Receive Date: 20040525
  Receipt Date: 20040513
  Transmission Date: 20050107
  Serious: Yes (Hospitalization)
  Sender: FDA-Public Use
  Company Number: JP-GLAXOSMITHKLINE-B0332707A

PATIENT
  Age: 48 Year
  Sex: Female

DRUGS (1)
  1. CEFAZOLIN [Suspect]
     Dosage: 2G PER DAY
     Route: 042
     Dates: start: 20040413, end: 20040415

REACTIONS (2)
  - EXANTHEM [None]
  - OEDEMA [None]
